FAERS Safety Report 9117412 (Version 2)
Quarter: 2013Q2

REPORT INFORMATION
  Report Type: Spontaneous
  Country: US (occurrence: US)
  Receive Date: 20130208
  Receipt Date: 20130408
  Transmission Date: 20140414
  Serious: Yes (Hospitalization)
  Sender: FDA-Public Use
  Company Number: US-AMGEN-USASP2013006788

PATIENT
  Age: 32 Year
  Sex: Female

DRUGS (3)
  1. ENBREL [Suspect]
     Indication: RHEUMATOID ARTHRITIS
     Dosage: 50 MG, QWK
     Dates: start: 20090530, end: 201107
  2. METHOTREXATE [Concomitant]
     Dosage: 10 MG, UNK
     Dates: start: 2010
  3. RITUXAN [Concomitant]
     Dosage: UNK

REACTIONS (5)
  - Drug hypersensitivity [Recovered/Resolved]
  - Meningitis [Recovered/Resolved]
  - Dermatomyositis [Recovered/Resolved]
  - Sepsis [Recovered/Resolved]
  - Hepatic enzyme increased [Recovered/Resolved]
